FAERS Safety Report 8942044 (Version 1)
Quarter: 2012Q4

REPORT INFORMATION
  Report Type: 
  Country: IT (occurrence: IT)
  Receive Date: 20121203
  Receipt Date: 20121203
  Transmission Date: 20130627
  Serious: Yes (Other)
  Sender: FDA-Public Use
  Company Number: IT-TEVA-372685ISR

PATIENT
  Age: 39 Year
  Sex: Female

DRUGS (5)
  1. CARBOLITHIUM [Suspect]
     Route: 048
  2. PROMAZINA [Suspect]
     Route: 048
  3. TOLEP [Suspect]
     Route: 048
  4. INVEGA [Suspect]
     Route: 048
  5. AKINETON [Suspect]
     Route: 048

REACTIONS (4)
  - Suicide attempt [Unknown]
  - Drug abuse [Unknown]
  - Sopor [Unknown]
  - Tachycardia [Unknown]
